FAERS Safety Report 12559517 (Version 16)
Quarter: 2021Q2

REPORT INFORMATION
  Report Type: Spontaneous
  Country: US (occurrence: US)
  Receive Date: 20160715
  Receipt Date: 20210615
  Transmission Date: 20210716
  Serious: Yes (Other)
  Sender: FDA-Public Use
  Company Number: US-PFIZER INC-2016340439

PATIENT
  Age: 76 Year
  Sex: Male
  Weight: 77 kg

DRUGS (19)
  1. LYRICA [Suspect]
     Active Substance: PREGABALIN
     Indication: NEUROPATHY PERIPHERAL
     Dosage: UNK
  2. LYRICA [Suspect]
     Active Substance: PREGABALIN
     Dosage: 200 MG, UNK
  3. LYRICA CR [Concomitant]
     Active Substance: PREGABALIN
     Dosage: 330 MG (DOUBLE UP OF 165 MG)
  4. OMEPRAZOLE. [Concomitant]
     Active Substance: OMEPRAZOLE
     Indication: HYPERCHLORHYDRIA
     Dosage: 20 MG, UNK
  5. LISINOPRIL. [Concomitant]
     Active Substance: LISINOPRIL
     Indication: BLOOD PRESSURE ABNORMAL
     Dosage: 10 MG, ONCE A DAY
  6. LYRICA [Suspect]
     Active Substance: PREGABALIN
     Dosage: 500 MG, DAILY (200 MG IN THE MORNING AND 300 MG AT NIGHT (ALSO MAYBE WITH TAKING 200 MG AT NIGHT)
  7. LYRICA [Suspect]
     Active Substance: PREGABALIN
     Dosage: 200 MG, TWICE A DAY (200 MG IN THE MORNING AND 200 MG AT NIGHT)
  8. GLIMEPIRIDE. [Concomitant]
     Active Substance: GLIMEPIRIDE
     Dosage: 2 MG, UNK
  9. METFORMIN [Concomitant]
     Active Substance: METFORMIN HYDROCHLORIDE
     Indication: BLOOD GLUCOSE ABNORMAL
     Dosage: 1000 MG, TWICE A DAY
  10. LYRICA [Suspect]
     Active Substance: PREGABALIN
     Dosage: 75 MG, UNK
  11. LYRICA [Suspect]
     Active Substance: PREGABALIN
     Dosage: 300 MG, TWICE A DAY (300 MG IN THE MORNING AND AT NIGHT)
  12. ATORVASTATIN [Concomitant]
     Active Substance: ATORVASTATIN
     Indication: BLOOD CHOLESTEROL ABNORMAL
     Dosage: 80 MG, 1X/DAY
  13. MARIJUANA [Concomitant]
     Active Substance: CANNABIS SATIVA SUBSP. INDICA TOP
     Indication: INSOMNIA
     Dosage: 5?7 MG ONCE NIGHTLY
     Route: 048
  14. LYRICA [Suspect]
     Active Substance: PREGABALIN
     Dosage: 500 MG, DAILY (300 MG AT NIGHT AND 200 MG DURING THE DAY)
  15. LYRICA [Suspect]
     Active Substance: PREGABALIN
     Dosage: 150 MG, UNSPECIFIED FREQUENCY
  16. TAMSULOSIN [Concomitant]
     Active Substance: TAMSULOSIN
     Indication: PROSTATIC DISORDER
     Dosage: 0.4 MG, ONCE A DAY
  17. LYRICA [Suspect]
     Active Substance: PREGABALIN
     Dosage: 300 MG, UNSPECIFIED FREQUENCY
  18. FINASTERIDE. [Concomitant]
     Active Substance: FINASTERIDE
     Indication: PROSTATIC DISORDER
     Dosage: 5 MG, ONCE A DAY
  19. GLIMEPIRIDE. [Concomitant]
     Active Substance: GLIMEPIRIDE
     Indication: BLOOD GLUCOSE ABNORMAL
     Dosage: 4 MG, 1X/DAY

REACTIONS (12)
  - Disorientation [Recovering/Resolving]
  - Slow speech [Unknown]
  - Feeling abnormal [Unknown]
  - Head injury [Unknown]
  - Diarrhoea [Recovered/Resolved]
  - Drug ineffective [Unknown]
  - Confusional state [Recovering/Resolving]
  - Somnolence [Unknown]
  - Intentional product misuse [Unknown]
  - Fall [Unknown]
  - Dehydration [Recovered/Resolved]
  - Dizziness [Unknown]

NARRATIVE: CASE EVENT DATE: 2017
